FAERS Safety Report 5322165-X (Version None)
Quarter: 2007Q2

REPORT INFORMATION
  Report Type: 
  Country: None (occurrence: None)
  Receive Date: 20070220
  Receipt Date: 20061228
  Transmission Date: 20071010
  Serious: No
  Sender: FDA-Public Use
  Company Number: TPA2007A00065

PATIENT
  Age: 74 Year
  Sex: Male
  Weight: 90.7194 kg

DRUGS (6)
  1. ROZEREM [Suspect]
     Indication: SLEEP DISORDER
     Dosage: PER ORAL
     Route: 048
  2. SIMVASTATIN [Concomitant]
  3. CYMBALTA [Concomitant]
  4. ZETIA [Concomitant]
  5. PLAVIX [Concomitant]
  6. VYTORIN [Concomitant]

REACTIONS (1)
  - DRUG INEFFECTIVE [None]
